FAERS Safety Report 16884938 (Version 1)
Quarter: 2019Q4

REPORT INFORMATION
  Report Type: Spontaneous
  Country: US (occurrence: US)
  Receive Date: 20191004
  Receipt Date: 20191004
  Transmission Date: 20200122
  Serious: No
  Sender: FDA-Public Use
  Company Number: US-009507513-1909USA002356

PATIENT
  Age: 80 Year
  Sex: Female

DRUGS (5)
  1. FOSAMAX [Suspect]
     Active Substance: ALENDRONATE SODIUM
     Indication: TOXICITY TO VARIOUS AGENTS
     Dosage: UNK
     Route: 048
  2. AMIODARONE [Concomitant]
     Active Substance: AMIODARONE
     Indication: ATRIAL FIBRILLATION
     Dosage: 200 MILLIGRAM, UNK
  3. SULFAMETHOXAZOLE (+) TRIMETHOPRIM [Concomitant]
     Active Substance: SULFAMETHOXAZOLE\TRIMETHOPRIM
     Indication: TOXICITY TO VARIOUS AGENTS
     Dosage: UNK
  4. OXYGEN. [Concomitant]
     Active Substance: OXYGEN
     Indication: TOXICITY TO VARIOUS AGENTS
     Dosage: LOW FLOW
  5. PREDNISONE. [Concomitant]
     Active Substance: PREDNISONE
     Indication: TOXICITY TO VARIOUS AGENTS
     Dosage: 60 MILLIGRAM, QD
     Route: 048

REACTIONS (1)
  - Drug effective for unapproved indication [Unknown]
